FAERS Safety Report 9012882 (Version 1)
Quarter: 2013Q1

REPORT INFORMATION
  Report Type: Spontaneous
  Country: DE (occurrence: DE)
  Receive Date: 20130114
  Receipt Date: 20130114
  Transmission Date: 20140127
  Serious: Yes (Other)
  Sender: FDA-Public Use
  Company Number: DE-TEVA-379193GER

PATIENT
  Sex: Male

DRUGS (6)
  1. GABAPENTIN [Suspect]
  2. AMLODIPIN 5 MG [Concomitant]
  3. ASS PROTECT 100 MG [Concomitant]
  4. VITAMIN B KOMPLEX RATIOPHARM [Concomitant]
  5. SIMVASTATIN [Concomitant]
  6. ALLOPURINOL 300 MG [Concomitant]

REACTIONS (2)
  - Loss of consciousness [Recovered/Resolved]
  - Muscle spasms [Recovered/Resolved]
